FAERS Safety Report 13829147 (Version 1)
Quarter: 2017Q3

REPORT INFORMATION
  Report Type: Spontaneous
  Country: US (occurrence: US)
  Receive Date: 20170802
  Receipt Date: 20170802
  Transmission Date: 20171127
  Serious: Yes (Hospitalization)
  Sender: FDA-Public Use
  Company Number: None

PATIENT
  Age: 71 Year
  Sex: Male

DRUGS (1)
  1. ENOXAPARIN [Suspect]
     Active Substance: ENOXAPARIN
     Route: 058
     Dates: start: 20170424, end: 20170505

REACTIONS (4)
  - Iron deficiency anaemia [None]
  - Haemorrhage [None]
  - Anaemia of chronic disease [None]
  - Retroperitoneal haematoma [None]

NARRATIVE: CASE EVENT DATE: 20170505
